FAERS Safety Report 5154309-7 (Version None)
Quarter: 2006Q4

REPORT INFORMATION
  Report Type: 
  Country: None (occurrence: None)
  Receive Date: 20061114
  Receipt Date: 20061030
  Transmission Date: 20070319
  Serious: Yes (Death, Hospitalization)
  Sender: FDA-Public Use
  Company Number: GXKR2006AU06853

PATIENT
  Age: 70 Year
  Sex: Female

DRUGS (4)
  1. VERAPAMIL [Suspect]
     Indication: DRUG USE FOR UNKNOWN INDICATION
     Dosage: 3200 MG
  2. NORTRIPTYLINE HCL [Suspect]
     Indication: DRUG USE FOR UNKNOWN INDICATION
     Dosage: 500 MG
  3. DIAZEPAM [Concomitant]
  4. CODEINE SUL TAB [Concomitant]

REACTIONS (5)
  - ACUTE MYOCARDIAL INFARCTION [None]
  - NODAL ARRHYTHMIA [None]
  - OVERDOSE [None]
  - PNEUMONIA ASPIRATION [None]
  - VOMITING [None]
